FAERS Safety Report 23296636 (Version 2)
Quarter: 2023Q4

REPORT INFORMATION
  Report Type: Spontaneous
  Country: US (occurrence: US)
  Receive Date: 20231214
  Receipt Date: 20231219
  Transmission Date: 20240109
  Serious: Yes (Other)
  Sender: FDA-Public Use
  Company Number: US-PFIZER INC-PV202300200063

PATIENT
  Sex: Female
  Weight: 3.061 kg

DRUGS (1)
  1. PAXLOVID [Suspect]
     Active Substance: NIRMATRELVIR\RITONAVIR
     Indication: COVID-19 treatment
     Dosage: UNK
     Route: 064
     Dates: start: 20221225, end: 20221229

REACTIONS (2)
  - Maternal exposure during pregnancy [Unknown]
  - Foetal distress syndrome [Unknown]
